FAERS Safety Report 6194438-2 (Version None)
Quarter: 2009Q2

REPORT INFORMATION
  Report Type: 
  Country: None (occurrence: None)
  Receive Date: 20090515
  Receipt Date: 20090505
  Transmission Date: 20091009
  Serious: Yes (Hospitalization)
  Sender: FDA-Public Use
  Company Number: GXKR2009CN05442

PATIENT
  Age: 46 Year
  Sex: Male

DRUGS (1)
  1. TRIAMCINOLONE ACETONIDE [Suspect]
     Indication: MACULAR OEDEMA
     Dosage: INTRAVITREOUS
     Dates: start: 20070516

REACTIONS (5)
  - ENDOPHTHALMITIS [None]
  - EYE INFECTION STAPHYLOCOCCAL [None]
  - HAEMORRHAGE [None]
  - LENS DISORDER [None]
  - PAPILLOEDEMA [None]
